FAERS Safety Report 8030709-2 (Version None)
Quarter: 2012Q1

REPORT INFORMATION
  Report Type: 
  Country: None (occurrence: None)
  Receive Date: 20120109
  Receipt Date: 20120102
  Transmission Date: 20120608
  Serious: Yes (Other)
  Sender: FDA-Public Use
  Company Number: PHHY2012BR001130

PATIENT
  Age: 67 Year
  Sex: Female
  Weight: 52 kg

DRUGS (2)
  1. MABTHERA [Suspect]
     Indication: B-CELL LYMPHOMA
     Dosage: UNK
  2. VOLTAREN [Suspect]

REACTIONS (7)
  - HYPERSENSITIVITY [None]
  - ABDOMINAL PAIN [None]
  - TREMOR [None]
  - NAUSEA [None]
  - CYANOSIS [None]
  - FORMICATION [None]
  - HYPOTENSION [None]
